FAERS Safety Report 17209076 (Version 1)
Quarter: 2019Q4

REPORT INFORMATION
  Report Type: Spontaneous
  Country: CN (occurrence: CN)
  Receive Date: 20191227
  Receipt Date: 20191227
  Transmission Date: 20200122
  Serious: Yes (Other)
  Sender: FDA-Public Use
  Company Number: CN-PFIZER INC-2019553097

PATIENT
  Age: 49 Year
  Sex: Male
  Weight: 75 kg

DRUGS (13)
  1. LEVETIRACETAM. [Suspect]
     Active Substance: LEVETIRACETAM
     Indication: THERAPEUTIC PROCEDURE
     Dosage: 0.5 G, 2X/DAY
     Route: 048
     Dates: start: 20191204
  2. SODIUM CHLORIDE. [Concomitant]
     Active Substance: SODIUM CHLORIDE
     Dosage: 100 ML, 2X/DAY
     Route: 041
     Dates: start: 20191203, end: 20191214
  3. XINGNAOJING [Suspect]
     Active Substance: HERBALS
     Indication: THERAPEUTIC PROCEDURE
     Dosage: 10 ML, 1X/DAY
     Route: 041
     Dates: start: 20191203
  4. MANNITOL. [Suspect]
     Active Substance: MANNITOL
     Indication: INTRACRANIAL PRESSURE INCREASED
     Dosage: 20 G, 3X/DAY
     Route: 041
     Dates: start: 20191204
  5. CHUANGCHENG [Suspect]
     Active Substance: NETILMICIN SULFATE
     Indication: PNEUMONIA
     Dosage: 100 MG, 2X/DAY
     Route: 041
     Dates: start: 20191205, end: 20191206
  6. NORVASC [Suspect]
     Active Substance: AMLODIPINE BESYLATE
     Indication: HYPERTENSION
     Dosage: 5 MG, 1X/DAY
     Route: 048
     Dates: start: 20191204
  7. HUMAN ALBUMIN [Suspect]
     Active Substance: ALBUMIN HUMAN
     Indication: INTRACRANIAL PRESSURE INCREASED
     Dosage: 10 G, 2X/DAY
     Route: 041
     Dates: start: 20191205
  8. FUROSEMIDE. [Suspect]
     Active Substance: FUROSEMIDE
     Indication: DIURETIC THERAPY
     Dosage: 20 MG, 2X/DAY
     Route: 040
     Dates: start: 20191205
  9. SODIUM CHLORIDE. [Concomitant]
     Active Substance: SODIUM CHLORIDE
     Dosage: 100 ML, 1X/DAY
     Route: 041
     Dates: start: 20191203, end: 20191211
  10. SODIUM CHLORIDE. [Concomitant]
     Active Substance: SODIUM CHLORIDE
     Indication: VEHICLE SOLUTION USE
     Dosage: 250 ML, 1X/DAY
     Route: 041
     Dates: start: 20191203, end: 20191214
  11. YINUOSHU [Suspect]
     Active Substance: AMBROXOL HYDROCHLORIDE
     Indication: SPUTUM ABNORMAL
     Dosage: 30 MG, 2X/DAY
     Route: 041
     Dates: start: 20191203
  12. TROPISETRON HYDROCHLORIDE [Suspect]
     Active Substance: TROPISETRON HYDROCHLORIDE
     Indication: THERAPEUTIC PROCEDURE
     Dosage: 5 MG, 1X/DAY
     Route: 041
     Dates: start: 20191203
  13. SODIUM CHLORIDE. [Concomitant]
     Active Substance: SODIUM CHLORIDE
     Dosage: 100 ML, 2X/DAY
     Route: 041
     Dates: start: 20191205, end: 20191206

REACTIONS (5)
  - Pneumonia [Unknown]
  - Pruritus [Not Recovered/Not Resolved]
  - Pruritus [Recovered/Resolved]
  - Rash [Recovered/Resolved]
  - Pyrexia [Unknown]

NARRATIVE: CASE EVENT DATE: 201912
